FAERS Safety Report 7515597-2 (Version None)
Quarter: 2011Q2

REPORT INFORMATION
  Report Type: 
  Country: None (occurrence: None)
  Receive Date: 20110601
  Receipt Date: 20110526
  Transmission Date: 20111010
  Serious: Yes (Death, Hospitalization)
  Sender: FDA-Public Use
  Company Number: US-AMGEN-USASP2011024578

PATIENT
  Sex: Male
  Weight: 87.528 kg

DRUGS (1)
  1. NPLATE [Suspect]
     Indication: IDIOPATHIC THROMBOCYTOPENIC PURPURA
     Dosage: 500 A?G, QWK
     Route: 058
     Dates: start: 20100603, end: 20110303

REACTIONS (2)
  - MULTI-ORGAN FAILURE [None]
  - PSEUDOMONAL SEPSIS [None]
